APPROVED DRUG PRODUCT: FEBUXOSTAT
Active Ingredient: FEBUXOSTAT
Strength: 40MG
Dosage Form/Route: TABLET;ORAL
Application: A205374 | Product #001 | TE Code: AB
Applicant: DR REDDYS LABORATORIES LTD
Approved: Oct 22, 2020 | RLD: No | RS: No | Type: RX